FAERS Safety Report 12478165 (Version 1)
Quarter: 2016Q2

REPORT INFORMATION
  Report Type: Spontaneous
  Country: US (occurrence: US)
  Receive Date: 20160617
  Receipt Date: 20160617
  Transmission Date: 20160815
  Serious: No
  Sender: FDA-Public Use
  Company Number: US-ELI_LILLY_AND_COMPANY-US201605005697

PATIENT
  Sex: Female

DRUGS (12)
  1. ZINCO                              /00156501/ [Concomitant]
     Dosage: UNK, UNKNOWN
     Route: 065
  2. HUMALOG [Suspect]
     Active Substance: INSULIN LISPRO
     Dosage: 20 IU, OTHER
     Route: 065
     Dates: start: 201310
  3. MAGNEESIUM [Concomitant]
     Active Substance: MAGNESIUM
     Dosage: UNK, UNKNOWN
     Route: 065
  4. METOPROLOL                         /00376902/ [Concomitant]
     Active Substance: METOPROLOL
     Dosage: UNK, UNKNOWN
     Route: 065
  5. TRULICITY [Suspect]
     Active Substance: DULAGLUTIDE
     Indication: TYPE 2 DIABETES MELLITUS
     Dosage: 1.5 MG, WEEKLY (1/W)
     Route: 065
     Dates: start: 201604
  6. LOVASTATINA [Concomitant]
     Dosage: UNK, UNKNOWN
     Route: 065
  7. HUMALOG [Suspect]
     Active Substance: INSULIN LISPRO
     Indication: TYPE 2 DIABETES MELLITUS
     Dosage: 20 IU, OTHER
     Route: 065
     Dates: start: 201310
  8. ATORVASTATIN [Concomitant]
     Active Substance: ATORVASTATIN
     Dosage: UNK, UNKNOWN
     Route: 065
  9. LANTUS [Concomitant]
     Active Substance: INSULIN GLARGINE
     Dosage: UNK, UNKNOWN
     Route: 065
  10. ASPIRIN                            /00002701/ [Concomitant]
     Active Substance: ASPIRIN
     Dosage: UNK, QD
     Route: 065
  11. OMEPRAZOL                          /00661201/ [Concomitant]
     Active Substance: OMEPRAZOLE
     Dosage: UNK, UNKNOWN
     Route: 065
  12. FURUSEMIDE [Concomitant]
     Dosage: UNK, UNKNOWN
     Route: 065

REACTIONS (7)
  - Injection site bruising [Not Recovered/Not Resolved]
  - Abdominal discomfort [Not Recovered/Not Resolved]
  - Memory impairment [Not Recovered/Not Resolved]
  - Limb discomfort [Not Recovered/Not Resolved]
  - Cellulitis [Recovered/Resolved]
  - Injection site pain [Not Recovered/Not Resolved]
  - Insomnia [Not Recovered/Not Resolved]
